FAERS Safety Report 7912102-3 (Version None)
Quarter: 2011Q4

REPORT INFORMATION
  Report Type: 
  Country: None (occurrence: None)
  Receive Date: 20111114
  Receipt Date: 20111107
  Transmission Date: 20120403
  Serious: Yes (Other)
  Sender: FDA-Public Use
  Company Number: BR-JNJFOC-20111103467

PATIENT
  Age: 37 Year
  Sex: Female
  Weight: 68 kg

DRUGS (2)
  1. ULTRACET [Suspect]
     Indication: PAIN
     Dosage: 1 IN 1 DAY
     Route: 048
     Dates: start: 20111102
  2. ACETAMINOPHEN W/ CODEINE [Suspect]
     Indication: PAIN
     Dosage: 1 IN 8 HOUR
     Route: 048
     Dates: start: 20111102

REACTIONS (1)
  - HAEMORRHOIDS [None]
